FAERS Safety Report 6722163-5 (Version None)
Quarter: 2010Q2

REPORT INFORMATION
  Report Type: 
  Country: None (occurrence: None)
  Receive Date: 20100512
  Receipt Date: 20100430
  Transmission Date: 20101027
  Serious: Yes (Hospitalization, Other)
  Sender: FDA-Public Use
  Company Number: US-BAYER-200942717NA

PATIENT
  Age: 44 Year
  Sex: Female

DRUGS (3)
  1. YAZ [Suspect]
     Indication: PREMENSTRUAL SYNDROME
     Dates: start: 20050101, end: 20090101
  2. YASMIN [Suspect]
     Indication: PREMENSTRUAL SYNDROME
     Dates: start: 20050101, end: 20090101
  3. OCELLA [Suspect]
     Indication: PREMENSTRUAL SYNDROME
     Dates: start: 20050101, end: 20090101

REACTIONS (5)
  - DEEP VEIN THROMBOSIS [None]
  - DEPRESSION [None]
  - MENTAL DISORDER [None]
  - MYOCARDIAL INFARCTION [None]
  - PULMONARY EMBOLISM [None]
